FAERS Safety Report 26087694 (Version 1)
Quarter: 2025Q4

REPORT INFORMATION
  Report Type: Spontaneous
  Country: US (occurrence: None)
  Receive Date: 20251125
  Receipt Date: 20251125
  Transmission Date: 20260117
  Serious: Yes (Hospitalization)
  Sender: FDA-CTU
  Company Number: None

PATIENT
  Age: 82 Year
  Sex: Female
  Weight: 85 kg

DRUGS (2)
  1. CEFTRIAXONE [Suspect]
     Active Substance: CEFTRIAXONE
     Indication: Urinary tract infection
     Dosage: OTHER FREQUENCY : ONCE;?
     Route: 042
     Dates: start: 20251108, end: 20251108
  2. HYDRALAZINE [Suspect]
     Active Substance: HYDRALAZINE HYDROCHLORIDE

REACTIONS (6)
  - Respiratory arrest [None]
  - Unresponsive to stimuli [None]
  - Erythema [None]
  - Hypotension [None]
  - Tachycardia [None]
  - Hypotonia [None]

NARRATIVE: CASE EVENT DATE: 20251108
